FAERS Safety Report 4779861-2 (Version None)
Quarter: 2005Q3

REPORT INFORMATION
  Report Type: 
  Country: None (occurrence: None)
  Receive Date: 20050914
  Receipt Date: 20040908
  Transmission Date: 20060218
  Serious: Yes (Hospitalization)
  Sender: FDA-Public Use
  Company Number: 163-20785-04060658

PATIENT
  Age: 85 Year
  Sex: Female

DRUGS (8)
  1. THALOMID [Suspect]
     Indication: MYELODYSPLASTIC SYNDROME
     Dosage: 50 MG, DAILY, ORAL
     Route: 048
     Dates: start: 20040427, end: 20040615
  2. BEXTRA [Concomitant]
  3. COUMADIN [Concomitant]
  4. FOSAMAX [Concomitant]
  5. LISINOPRIL [Concomitant]
  6. TOPROL (METOPROLOL SUCCINATE) [Concomitant]
  7. FUROSEMIDE [Concomitant]
  8. HYDROXYUREA [Concomitant]

REACTIONS (4)
  - DIZZINESS [None]
  - DYSPNOEA [None]
  - FATIGUE [None]
  - HEART RATE IRREGULAR [None]
